FAERS Safety Report 13615337 (Version 1)
Quarter: 2017Q2

REPORT INFORMATION
  Report Type: Spontaneous
  Country: US (occurrence: US)
  Receive Date: 20170605
  Receipt Date: 20170605
  Transmission Date: 20170830
  Serious: Yes (Life-Threatening, Disabling, Other)
  Sender: FDA-Public Use
  Company Number: None

PATIENT
  Age: 47 Year
  Sex: Female
  Weight: 58.5 kg

DRUGS (5)
  1. MIBELAS 24 FE [Suspect]
     Active Substance: ETHINYL ESTRADIOL\NORETHINDRONE ACETATE
     Indication: PAIN
     Dosage: ?          QUANTITY:24 TABLET(S);?
     Route: 048
     Dates: start: 20170417, end: 20170503
  2. MIBELAS 24 FE [Suspect]
     Active Substance: ETHINYL ESTRADIOL\NORETHINDRONE ACETATE
     Indication: HAEMORRHAGE
     Dosage: ?          QUANTITY:24 TABLET(S);?
     Route: 048
     Dates: start: 20170417, end: 20170503
  3. MIBELAS 24 FE [Suspect]
     Active Substance: ETHINYL ESTRADIOL\NORETHINDRONE ACETATE
     Indication: DISCOMFORT
     Dosage: ?          QUANTITY:24 TABLET(S);?
     Route: 048
     Dates: start: 20170417, end: 20170503
  4. CYCLOBENZAPRINE. [Concomitant]
     Active Substance: CYCLOBENZAPRINE
  5. CLARITIN [Concomitant]
     Active Substance: LORATADINE

REACTIONS (13)
  - Product use issue [None]
  - Abdominal pain [None]
  - Haemorrhage [None]
  - Muscle spasms [None]
  - Insomnia [None]
  - Product substitution issue [None]
  - Breast swelling [None]
  - Accident [None]
  - Hormone level abnormal [None]
  - Malaise [None]
  - Fatigue [None]
  - Product packaging issue [None]
  - Anger [None]

NARRATIVE: CASE EVENT DATE: 20170417
